FAERS Safety Report 18458089 (Version 1)
Quarter: 2020Q4

REPORT INFORMATION
  Report Type: Report from Study
  Country: GB (occurrence: GB)
  Receive Date: 20201103
  Receipt Date: 20201103
  Transmission Date: 20210114
  Serious: Yes (Other)
  Sender: FDA-Public Use
  Company Number: GB-PFIZER INC-2020129028

PATIENT
  Age: 39 Year
  Sex: Male

DRUGS (7)
  1. ZOMORPH [Concomitant]
     Active Substance: MORPHINE SULFATE
     Dosage: UNKNOWN
     Route: 065
  2. PREGABALIN. [Concomitant]
     Active Substance: PREGABALIN
     Dosage: UNKNOWN
     Route: 065
  3. BENEPALI [Suspect]
     Active Substance: ETANERCEPT
     Indication: RHEUMATOID ARTHRITIS
     Dosage: 50 MG, WEEKLY
     Route: 058
     Dates: start: 20200415
  4. ORAMORPH SR SUSTAINED RELEASE [Concomitant]
     Active Substance: MORPHINE SULFATE
     Dosage: UNKNOWN
     Route: 065
  5. PARACETAMOL [Concomitant]
     Active Substance: ACETAMINOPHEN
     Dosage: UNKNOWN
     Route: 065
  6. METHOTREXATE SODIUM. [Suspect]
     Active Substance: METHOTREXATE SODIUM
     Dosage: UNKNOWN
     Route: 065
  7. DIAZEPAM. [Concomitant]
     Active Substance: DIAZEPAM
     Dosage: UNKNOWN
     Route: 065

REACTIONS (19)
  - Injection site pain [Unknown]
  - Obesity [Unknown]
  - Drug ineffective [Unknown]
  - Rheumatoid arthritis [Unknown]
  - Intervertebral disc injury [Unknown]
  - Fatigue [Unknown]
  - Liver function test increased [Not Recovered/Not Resolved]
  - Decreased appetite [Unknown]
  - Neuralgia [Unknown]
  - Stress [Unknown]
  - Glucose tolerance impaired [Unknown]
  - Intentional self-injury [Unknown]
  - Injection site mass [Unknown]
  - Depression [Unknown]
  - Gait disturbance [Unknown]
  - Weight increased [Unknown]
  - Sleep deficit [Unknown]
  - Anxiety [Unknown]
  - Fibromyalgia [Unknown]
